FAERS Safety Report 21468656 (Version 1)
Quarter: 2022Q4

REPORT INFORMATION
  Report Type: Spontaneous
  Country: BR (occurrence: BR)
  Receive Date: 20221018
  Receipt Date: 20221018
  Transmission Date: 20230113
  Serious: Yes (Hospitalization, Other)
  Sender: FDA-Public Use
  Company Number: BR-MLMSERVICE-20220928-3822357-1

PATIENT
  Sex: Female

DRUGS (7)
  1. CARBOPLATIN [Suspect]
     Active Substance: CARBOPLATIN
     Indication: Invasive ductal breast carcinoma
     Dosage: AUC 6, CYCLICAL
     Route: 042
  2. APREPITANT [Concomitant]
     Active Substance: APREPITANT
     Indication: Invasive ductal breast carcinoma
     Dosage: 150 MG, CYCLICAL
     Route: 065
  3. LIPEGFILGRASTIM [Concomitant]
     Active Substance: LIPEGFILGRASTIM
     Indication: Invasive ductal breast carcinoma
     Dosage: 6 MG CYCLICAL
     Route: 065
  4. GOSERELIN [Concomitant]
     Active Substance: GOSERELIN
     Indication: Invasive ductal breast carcinoma
     Dosage: 3.6 MG, CYCLICAL
     Route: 065
  5. PERTUZUMAB [Concomitant]
     Active Substance: PERTUZUMAB
     Indication: Invasive ductal breast carcinoma
     Dosage: 840 MG, CYCLICAL
     Route: 042
  6. TRASTUZUMAB [Concomitant]
     Active Substance: TRASTUZUMAB
     Indication: Invasive ductal breast carcinoma
     Dosage: 8 MG/KG, CYCLICAL
     Route: 042
  7. DOCETAXEL [Concomitant]
     Active Substance: DOCETAXEL
     Indication: Invasive ductal breast carcinoma
     Dosage: 75 MG/M2, CYCLICAL
     Route: 042

REACTIONS (4)
  - Ureteric obstruction [Recovered/Resolved]
  - Haematuria [Recovered/Resolved]
  - Renal impairment [Recovered/Resolved]
  - Anaemia [Recovered/Resolved]
